FAERS Safety Report 4978909-X (Version None)
Quarter: 2006Q2

REPORT INFORMATION
  Report Type: 
  Country: None (occurrence: None)
  Receive Date: 20060417
  Receipt Date: 20060406
  Transmission Date: 20061013
  Serious: Yes (Death)
  Sender: FDA-Public Use
  Company Number: 2006026482

PATIENT
  Age: 77 Year
  Sex: Female
  Weight: 76 kg

DRUGS (17)
  1. LYRICA [Suspect]
     Indication: NEUROPATHY PERIPHERAL
     Dosage: 150 MG (75 MG, 2 IN 1 D), ORAL
     Route: 048
     Dates: start: 20060116, end: 20060201
  2. MIRTAZAPINE [Concomitant]
  3. ROSIGLITAZONE [Concomitant]
  4. LANSOPRAZOLE [Concomitant]
  5. ASPIRIN [Concomitant]
  6. GLICLAZIDE (GLICLAZIDE) [Concomitant]
  7. LATANOPROST [Concomitant]
  8. ALFACALCIDOL (ALFACALCIDOL) [Concomitant]
  9. QUININE SULFATE [Concomitant]
  10. LOPERAMIDE HCL [Concomitant]
  11. SPIRONOLACTONE [Concomitant]
  12. ALLOPURINOL [Concomitant]
  13. FUROSEMIDE [Concomitant]
  14. CODEINE PHOSPHATE (CODEINE PHOSPHATE) [Concomitant]
  15. BRIMONIDINE (BRIMONIDINE) [Concomitant]
  16. CARVEDILOL [Concomitant]
  17. ACETAMINOPHEN [Concomitant]

REACTIONS (2)
  - ACUTE MYOCARDIAL INFARCTION [None]
  - SUDDEN DEATH [None]
